FAERS Safety Report 4515833-0 (Version None)
Quarter: 2004Q4

REPORT INFORMATION
  Report Type: 
  Country: None (occurrence: None)
  Receive Date: 20041001
  Receipt Date: 20031027
  Transmission Date: 20050328
  Serious: Yes (Hospitalization)
  Sender: FDA-Public Use
  Company Number: TPA2003A01326

PATIENT
  Age: 73 Year
  Sex: Male
  Weight: 107.9561 kg

DRUGS (7)
  1. ACTOS [Suspect]
     Indication: DIABETES MELLITUS NON-INSULIN-DEPENDENT
     Dosage: 30 MG, 1 IN 1 D, PER ORAL
     Route: 048
     Dates: start: 20021218, end: 20030910
  2. UNKNOWN INSULIN (INSULIN /N/A/) [Concomitant]
  3. LASIX [Concomitant]
  4. LANTUS [Concomitant]
  5. ACETYLSALICYLIC ACID SRT [Concomitant]
  6. IMDUR [Concomitant]
  7. LEXAPRO [Concomitant]

REACTIONS (1)
  - CARDIAC FAILURE [None]
